FAERS Safety Report 8387130-7 (Version None)
Quarter: 2012Q1

REPORT INFORMATION
  Report Type: 
  Country: None (occurrence: None)
  Receive Date: 20120323
  Receipt Date: 20110401
  Transmission Date: 20120608
  Serious: Yes (Other)
  Sender: FDA-Public Use
  Company Number: 163-21880-11040277

PATIENT
  Age: 59 Year
  Sex: Female

DRUGS (6)
  1. REVLIMID [Suspect]
     Indication: MULTIPLE MYELOMA
     Dosage: 25 MG, 1 IN 1 D, PO
     Route: 048
     Dates: start: 20110328
  2. LISINOPRIL [Concomitant]
  3. ASPIRIN [Concomitant]
  4. LANTUS [Concomitant]
  5. DEXAMETHASONE [Concomitant]
  6. METFORMIN HCL [Concomitant]

REACTIONS (1)
  - PRURITUS [None]
